FAERS Safety Report 5368712-3 (Version None)
Quarter: 2007Q2

REPORT INFORMATION
  Report Type: 
  Country: None (occurrence: None)
  Receive Date: 20070625
  Receipt Date: 20070417
  Transmission Date: 20071010
  Serious: No
  Sender: FDA-Public Use
  Company Number: US-BRISTOL-MYERS SQUIBB COMPANY-13750500

PATIENT
  Sex: Female
  Weight: 131 kg

DRUGS (3)
  1. ORENCIA [Suspect]
     Dates: start: 20070104
  2. METHOTREXATE [Concomitant]
  3. PREDNISONE TAB [Concomitant]

REACTIONS (1)
  - PNEUMONIA [None]
